FAERS Safety Report 8264844 (Version 2)
Quarter: 2013Q4

REPORT INFORMATION
  Report Type: Spontaneous
  Country: US (occurrence: US)
  Receive Date: 20111128
  Receipt Date: 20131118
  Transmission Date: 20140711
  Serious: Yes (Other)
  Sender: FDA-Public Use
  Company Number: US-UCBSA-045954

PATIENT
  Age: 35 Year
  Sex: Female

DRUGS (2)
  1. CIMZIA [Suspect]
     Indication: CROHN^S DISEASE
     Route: 058
     Dates: start: 20100323, end: 2010
  2. CIMZIA [Suspect]
     Indication: CROHN^S DISEASE
     Dates: start: 20100629

REACTIONS (3)
  - Caesarean section [Unknown]
  - Pregnancy [Unknown]
  - Inappropriate schedule of drug administration [Not Recovered/Not Resolved]
